FAERS Safety Report 11534086 (Version 2)
Quarter: 2015Q4

REPORT INFORMATION
  Report Type: Spontaneous
  Country: JP (occurrence: JP)
  Receive Date: 20150922
  Receipt Date: 20151012
  Transmission Date: 20160304
  Serious: Yes (Hospitalization)
  Sender: FDA-Public Use
  Company Number: JP-ROCHE-1622210

PATIENT
  Age: 65 Year
  Sex: Male
  Weight: 61 kg

DRUGS (9)
  1. LOXOPROFEN [Concomitant]
     Active Substance: LOXOPROFEN
     Indication: RHEUMATOID ARTHRITIS
     Route: 048
     Dates: start: 20131010
  2. NEXIUM [Concomitant]
     Active Substance: ESOMEPRAZOLE MAGNESIUM
     Route: 048
     Dates: start: 20140619
  3. ACTEMRA [Suspect]
     Active Substance: TOCILIZUMAB
     Indication: RHEUMATOID ARTHRITIS
     Dosage: THREE TIMES
     Route: 058
     Dates: start: 20150702, end: 20150813
  4. FOSAMAC [Concomitant]
     Active Substance: ALENDRONATE SODIUM
     Route: 048
     Dates: start: 20131010
  5. BROTIZOLAM [Concomitant]
     Active Substance: BROTIZOLAM
     Route: 048
     Dates: start: 20131010
  6. ONEALFA [Concomitant]
     Active Substance: ALFACALCIDOL
     Route: 048
     Dates: start: 20131010
  7. BREDININ [Suspect]
     Active Substance: MIZORIBINE
     Indication: RHEUMATOID ARTHRITIS
     Route: 048
     Dates: start: 20131031
  8. VESICARE [Concomitant]
     Active Substance: SOLIFENACIN SUCCINATE
     Route: 048
     Dates: start: 20131010
  9. PREDNISOLONE. [Suspect]
     Active Substance: PREDNISOLONE
     Indication: RHEUMATOID ARTHRITIS
     Route: 048
     Dates: start: 20131010

REACTIONS (5)
  - Peritonitis [Recovering/Resolving]
  - Diverticulitis [Recovering/Resolving]
  - Arthralgia [Unknown]
  - Pyrexia [Unknown]
  - Faeces soft [Unknown]

NARRATIVE: CASE EVENT DATE: 20150811
